FAERS Safety Report 6963248-8 (Version None)
Quarter: 2010Q3

REPORT INFORMATION
  Report Type: 
  Country: None (occurrence: None)
  Receive Date: 20100902
  Receipt Date: 20100824
  Transmission Date: 20110219
  Serious: Yes (Life-Threatening, Hospitalization)
  Sender: FDA-Public Use
  Company Number: DE-NOVOPROD-306751

PATIENT
  Sex: Male
  Weight: 121 kg

DRUGS (9)
  1. VICTOZA [Suspect]
     Indication: TYPE 2 DIABETES MELLITUS
     Dosage: 6 MG, QD
     Route: 058
     Dates: start: 20100317, end: 20100317
  2. METFORMIN [Concomitant]
     Indication: TYPE 2 DIABETES MELLITUS
     Dosage: 1000 MG, QD
  3. RAMIPRIL [Interacting]
     Indication: HYPERTENSION
     Dosage: 5 MG, UNK
     Route: 048
     Dates: start: 20060101
  4. ASPIRIN [Concomitant]
     Dosage: 100 MG, QD
  5. SIMVASTATIN [Concomitant]
     Dosage: 20 MG, QD
  6. NISOLDIPINE [Concomitant]
     Dosage: 10 MG, QD
  7. BISOPROLOL FUMARATE [Concomitant]
     Dosage: 5 MG, QD
     Route: 048
  8. OMEPRAZOL                          /00661201/ [Concomitant]
     Dosage: 20 MG, QD
  9. BAYMYCARD [Concomitant]
     Dosage: UNK
     Route: 048

REACTIONS (2)
  - ANGIOEDEMA [None]
  - DRUG INTERACTION [None]
